FAERS Safety Report 20152166 (Version 1)
Quarter: 2021Q4

REPORT INFORMATION
  Report Type: Spontaneous
  Country: CN (occurrence: CN)
  Receive Date: 20211206
  Receipt Date: 20211206
  Transmission Date: 20220303
  Serious: Yes (Other)
  Sender: FDA-Public Use
  Company Number: CN-PFIZER INC-202101676713

PATIENT
  Age: 61 Year
  Sex: Male

DRUGS (1)
  1. METHOTREXATE [Suspect]
     Active Substance: METHOTREXATE
     Indication: Neoplasm
     Dosage: 3.0 G, 1X/DAY
     Route: 041
     Dates: start: 20211117, end: 20211118

REACTIONS (1)
  - Synovitis [Recovering/Resolving]

NARRATIVE: CASE EVENT DATE: 20211118
